FAERS Safety Report 4455557-1 (Version None)
Quarter: 2004Q3

REPORT INFORMATION
  Report Type: 
  Country: None (occurrence: None)
  Receive Date: 20040917
  Receipt Date: 20040907
  Transmission Date: 20050211
  Serious: Yes (Hospitalization, Other)
  Sender: FDA-Public Use
  Company Number: 2004064566

PATIENT
  Age: 45 Year
  Sex: Male
  Weight: 104.3273 kg

DRUGS (6)
  1. VIAGRA [Suspect]
     Indication: ILL-DEFINED DISORDER
     Dosage: (100 MG, AS NECESSARY), ORAL/3 TO 4 YEARS
     Route: 048
  2. VALSARTAN (VALSARTAN) [Concomitant]
  3. GABAPENTIN [Concomitant]
  4. PAROXETINE HCL [Concomitant]
  5. VICODIN [Concomitant]
  6. IBUPROFEN [Concomitant]

REACTIONS (7)
  - ERECTION INCREASED [None]
  - HIP FRACTURE [None]
  - INTERNAL INJURY [None]
  - ROAD TRAFFIC ACCIDENT [None]
  - TESTICULAR INJURY [None]
  - TESTICULAR PAIN [None]
  - UPPER LIMB FRACTURE [None]
